FAERS Safety Report 11874750 (Version 1)
Quarter: 2015Q4

REPORT INFORMATION
  Report Type: Spontaneous
  Country: US (occurrence: None)
  Receive Date: 20151228
  Receipt Date: 20151228
  Transmission Date: 20160305
  Serious: Yes (Other)
  Sender: FDA-Public Use
  Company Number: None

PATIENT
  Age: 37 Year
  Sex: Female

DRUGS (2)
  1. MULTIHANCE [Concomitant]
     Active Substance: GADOBENATE DIMEGLUMINE
  2. GADOBENATE DIMEGLUMINE [Suspect]
     Active Substance: GADOBENATE DIMEGLUMINE
     Indication: NUCLEAR MAGNETIC RESONANCE IMAGING
     Route: 042
     Dates: start: 20151215, end: 20151215

REACTIONS (5)
  - Lacrimation increased [None]
  - Dyspnoea [None]
  - Contrast media reaction [None]
  - Erythema [None]
  - Nasal congestion [None]

NARRATIVE: CASE EVENT DATE: 20151215
